FAERS Safety Report 7204687-X (Version None)
Quarter: 2010Q4

REPORT INFORMATION
  Report Type: 
  Country: None (occurrence: None)
  Receive Date: 20101220
  Receipt Date: 20101208
  Transmission Date: 20110411
  Serious: Yes (Hospitalization)
  Sender: FDA-Public Use
  Company Number: 2010EU001443

PATIENT
  Age: 71 Year
  Sex: Male

DRUGS (4)
  1. PROGRAF [Suspect]
     Indication: RENAL TRANSPLANT
     Dosage: 4 MG, BID
     Dates: start: 20090413, end: 20090423
  2. SIMULECT [Suspect]
     Indication: RENAL TRANSPLANT
  3. CELLCEPT [Suspect]
     Indication: RENAL TRANSPLANT
     Dosage: 500 MG, BID
  4. PREDNISONE TAB [Suspect]
     Indication: RENAL TRANSPLANT
     Dosage: 20 MG, UID/QD, ORAL
     Route: 048
     Dates: start: 20090413, end: 20090420

REACTIONS (3)
  - DIABETES MELLITUS [None]
  - OVERDOSE [None]
  - SUPRAVENTRICULAR TACHYCARDIA [None]
